FAERS Safety Report 18354457 (Version 1)
Quarter: 2020Q4

REPORT INFORMATION
  Report Type: Other
  Country: JP (occurrence: JP)
  Receive Date: 20201007
  Receipt Date: 20201007
  Transmission Date: 20210114
  Serious: Yes (Other)
  Sender: FDA-Public Use
  Company Number: JP-ROCHE-2687667

PATIENT

DRUGS (1)
  1. TOCILIZUMAB. [Suspect]
     Active Substance: TOCILIZUMAB
     Indication: RHEUMATOID ARTHRITIS
     Route: 065

REACTIONS (16)
  - Sinusitis [Recovered/Resolved]
  - Haemophilus infection [Recovering/Resolving]
  - Cellulitis [Recovering/Resolving]
  - Klebsiella infection [Recovering/Resolving]
  - Gastroenteritis viral [Recovered/Resolved]
  - Pneumococcal infection [Recovering/Resolving]
  - Gastroenteritis [Recovered/Resolved]
  - Varicella zoster virus infection [Recovered/Resolved]
  - Arthritis bacterial [Recovering/Resolving]
  - Pneumonia [Recovering/Resolving]
  - Streptococcal infection [Recovering/Resolving]
  - Upper respiratory tract infection [Recovered/Resolved]
  - Sinusitis bacterial [Recovering/Resolving]
  - Cystitis [Recovering/Resolving]
  - Bronchitis [Recovered/Resolved]
  - Influenza [Recovered/Resolved]
